FAERS Safety Report 10640259 (Version 1)
Quarter: 2014Q4

REPORT INFORMATION
  Report Type: Spontaneous
  Country: US (occurrence: US)
  Receive Date: 20141209
  Receipt Date: 20141209
  Transmission Date: 20150529
  Serious: Yes (Death)
  Sender: FDA-Public Use
  Company Number: US-THROMBOGENICS NV-SPO-2014-1488

PATIENT
  Sex: Female

DRUGS (1)
  1. JETREA [Suspect]
     Active Substance: OCRIPLASMIN
     Dosage: 0.125 MG, ONE TIME DOSE
     Route: 031
     Dates: start: 20140502, end: 20140502

REACTIONS (1)
  - Death [Fatal]

NARRATIVE: CASE EVENT DATE: 2014
